FAERS Safety Report 11811115 (Version 1)
Quarter: 2015Q4

REPORT INFORMATION
  Report Type: Spontaneous
  Country: US (occurrence: None)
  Receive Date: 20151207
  Receipt Date: 20151207
  Transmission Date: 20160305
  Serious: No
  Sender: FDA-Public Use
  Company Number: None

PATIENT
  Sex: Female

DRUGS (1)
  1. ADCIRCA [Suspect]
     Active Substance: TADALAFIL
     Indication: LUNG DISORDER
     Route: 048
     Dates: start: 20151107

REACTIONS (4)
  - Somnolence [None]
  - Fatigue [None]
  - Dizziness [None]
  - Headache [None]

NARRATIVE: CASE EVENT DATE: 2015
